FAERS Safety Report 18633043 (Version 1)
Quarter: 2020Q4

REPORT INFORMATION
  Report Type: Report from Study
  Country: US (occurrence: US)
  Receive Date: 20201218
  Receipt Date: 20201218
  Transmission Date: 20210114
  Serious: Yes (Death, Other)
  Sender: FDA-Public Use
  Company Number: NVSC2020US333442

PATIENT
  Age: 20 Year
  Sex: Male

DRUGS (3)
  1. CYCLOPHOSPHAMIDE. [Concomitant]
     Active Substance: CYCLOPHOSPHAMIDE
     Indication: CHEMOTHERAPY
     Dosage: UNK
     Route: 065
  2. KYMRIAH [Suspect]
     Active Substance: TISAGENLECLEUCEL
     Indication: LYMPHOCYTIC LEUKAEMIA
     Dosage: UNK, ONCE/SINGLE
     Route: 041
     Dates: start: 20200706
  3. FLUDARABINE [Concomitant]
     Active Substance: FLUDARABINE PHOSPHATE
     Indication: CHEMOTHERAPY
     Dosage: UNK
     Route: 065

REACTIONS (11)
  - Thrombocytopenia [Unknown]
  - Cytopenia [Unknown]
  - Nephropathy toxic [Unknown]
  - Bone marrow failure [Unknown]
  - Aspergillus infection [Unknown]
  - Hypogammaglobulinaemia [Unknown]
  - Klebsiella infection [Unknown]
  - Death [Fatal]
  - Cytokine release syndrome [Recovered/Resolved]
  - Cytomegalovirus infection [Unknown]
  - Pyrexia [Unknown]
